FAERS Safety Report 6792718-0 (Version None)
Quarter: 2010Q2

REPORT INFORMATION
  Report Type: 
  Country: None (occurrence: None)
  Receive Date: 20100624
  Receipt Date: 20080923
  Transmission Date: 20101027
  Serious: Yes (Hospitalization)
  Sender: FDA-Public Use
  Company Number: US-PFIZER INC-2008070532

PATIENT
  Sex: Female
  Weight: 85.7 kg

DRUGS (1)
  1. GEODON [Suspect]
     Dates: start: 20080814, end: 20080817

REACTIONS (1)
  - DYSTONIA [None]
